FAERS Safety Report 13671453 (Version 1)
Quarter: 2017Q2

REPORT INFORMATION
  Report Type: Spontaneous
  Country: US (occurrence: US)
  Receive Date: 20170620
  Receipt Date: 20170620
  Transmission Date: 20170830
  Serious: No
  Sender: FDA-Public Use
  Company Number: US-ROCHE-1262615

PATIENT
  Sex: Female

DRUGS (2)
  1. XELODA [Suspect]
     Active Substance: CAPECITABINE
     Indication: GASTRIC CANCER
     Dosage: 1 X 150MG TABLET AND 3 X 500MG TABLETS
     Route: 048
     Dates: start: 20130730
  2. XELODA [Suspect]
     Active Substance: CAPECITABINE
     Dosage: 3 TABS IN MORNING, 2 TABS IN EVENING
     Route: 048
     Dates: start: 20130731

REACTIONS (3)
  - Nausea [Unknown]
  - Diarrhoea [Unknown]
  - Vision blurred [Not Recovered/Not Resolved]
